FAERS Safety Report 18509172 (Version 1)
Quarter: 2020Q4

REPORT INFORMATION
  Report Type: Spontaneous
  Country: DE (occurrence: DE)
  Receive Date: 20201117
  Receipt Date: 20201117
  Transmission Date: 20210114
  Serious: Yes (Hospitalization, Other)
  Sender: FDA-Public Use
  Company Number: DE-TEVA-2020-DE-1848577

PATIENT
  Age: 77 Year
  Sex: Female
  Weight: 99 kg

DRUGS (17)
  1. BISOPROLOL [Suspect]
     Active Substance: BISOPROLOL
     Dosage: 10 MILLIGRAM DAILY; , 1-0-1-0
     Route: 065
  2. PREGABALIN. [Suspect]
     Active Substance: PREGABALIN
     Dosage: 50 MG, 1-0.5-0.5-0
  3. EDOXABAN [Concomitant]
     Active Substance: EDOXABAN TOSYLATE
     Dosage: 60 MILLIGRAM DAILY;  1-0-0-0
  4. INSULIN LISPRO [Concomitant]
     Active Substance: INSULIN LISPRO
     Dosage: 1 IU, 8-10-12-0
  5. QUETIAPINE. [Concomitant]
     Active Substance: QUETIAPINE
     Dosage: 2 DOSAGE FORMS DAILY; 50 MG, 0-0-0-2
  6. PANTOPRAZOL [Concomitant]
     Active Substance: PANTOPRAZOLE SODIUM
     Dosage: 20 MILLIGRAM DAILY;  1-0-0-0
  7. TILIDINE/NALOXONE [Concomitant]
     Active Substance: NALOXONE HYDROCHLORIDE\TILIDINE HYDROCHLORIDE
     Dosage: 8|100 MG, 1-0-0.5-0
  8. MAGNESIUM CITRATE. [Concomitant]
     Active Substance: MAGNESIUM CITRATE
     Dosage: 400 MILLIGRAM DAILY; 0-0-1-0
  9. MIRTAZAPIN [Concomitant]
     Active Substance: MIRTAZAPINE
     Dosage: 30 MILLIGRAM DAILY; 0-0-1-0
  10. LORAZEPAM. [Suspect]
     Active Substance: LORAZEPAM
     Dosage: 1 MILLIGRAM DAILY;  1-0-0-1
  11. DIGITOXIN [Concomitant]
     Active Substance: DIGITOXIN
     Dosage: .1 MILLIGRAM DAILY; 1-0-0-0
  12. LEVEMIR [Concomitant]
     Active Substance: INSULIN DETEMIR
     Dosage: 6 IU (INTERNATIONAL UNIT) DAILY;  0-0-1-0
  13. METAMIZOL [Concomitant]
     Active Substance: METAMIZOLE SODIUM
     Dosage: 1500 MILLIGRAM DAILY;  1-1-1-0
  14. LERCANIDIPINE [Concomitant]
     Active Substance: LERCANIDIPINE
     Dosage: 20 MILLIGRAM DAILY; 1-0-0-0
  15. BUDESONIDE. [Concomitant]
     Active Substance: BUDESONIDE
     Dosage: .8 MILLIGRAM DAILY; 1-0-1-0
  16. PIPAMPERONE [Suspect]
     Active Substance: PIPAMPERONE
     Dosage: 40 MG, 0.5-0-0-1
  17. TORASEMID [Concomitant]
     Active Substance: TORSEMIDE
     Dosage: 40 MILLIGRAM DAILY;  1-1-0-0

REACTIONS (3)
  - Depressed mood [Unknown]
  - Cardiac failure [Unknown]
  - Dyspnoea [Unknown]
